FAERS Safety Report 24123243 (Version 1)
Quarter: 2024Q3

REPORT INFORMATION
  Report Type: Spontaneous
  Country: US (occurrence: US)
  Receive Date: 20240723
  Receipt Date: 20240723
  Transmission Date: 20241017
  Serious: No
  Sender: OTSUKA
  Company Number: US-OTSUKA-2023_018736

PATIENT
  Sex: Female

DRUGS (2)
  1. REXULTI [Suspect]
     Active Substance: BREXPIPRAZOLE
     Indication: Product used for unknown indication
     Dosage: 2 DF
     Route: 065
  2. XIFAXAN [Concomitant]
     Active Substance: RIFAXIMIN
     Indication: Irritable bowel syndrome
     Dosage: UNK
     Route: 065

REACTIONS (7)
  - Oxygen saturation decreased [Unknown]
  - Reaction to colouring [Unknown]
  - Malaise [Unknown]
  - Blood pressure increased [Unknown]
  - Rash [Unknown]
  - Dizziness [Unknown]
  - Drug ineffective [Unknown]
